FAERS Safety Report 6885525-1 (Version None)
Quarter: 2010Q3

REPORT INFORMATION
  Report Type: 
  Country: None (occurrence: None)
  Receive Date: 20100729
  Receipt Date: 20080818
  Transmission Date: 20110219
  Serious: Yes (Other)
  Sender: FDA-Public Use
  Company Number: US-PFIZER INC-2008069469

PATIENT
  Sex: Female
  Weight: 80 kg

DRUGS (3)
  1. CELEBREX [Suspect]
     Indication: BACK PAIN
     Route: 048
     Dates: start: 19990201, end: 20071001
  2. ZOLOFT [Suspect]
     Indication: NEURALGIA
     Route: 048
     Dates: start: 19990101
  3. LISINOPRIL [Concomitant]
     Indication: HYPERTENSION

REACTIONS (1)
  - RENAL FAILURE ACUTE [None]
